FAERS Safety Report 8022124-2 (Version None)
Quarter: 2012Q1

REPORT INFORMATION
  Report Type: 
  Country: None (occurrence: None)
  Receive Date: 20120104
  Receipt Date: 20120103
  Transmission Date: 20120608
  Serious: Yes (Hospitalization, Other)
  Sender: FDA-Public Use
  Company Number: US-PFIZER INC-US-WYE-H04825708

PATIENT
  Sex: Female
  Weight: 88.9 kg

DRUGS (6)
  1. PREMPHASE (PREMARIN;CYCRIN 14/14) [Suspect]
  2. PREMARIN [Suspect]
     Dosage: UNKNOWN
     Route: 048
  3. PROVERA [Suspect]
     Dosage: UNKNOWN
     Route: 048
  4. PREMPRO [Suspect]
     Indication: HORMONE REPLACEMENT THERAPY
     Dosage: UNKNOWN
     Route: 048
     Dates: start: 19980312, end: 20020701
  5. PREMPRO [Suspect]
     Indication: CARDIAC DISORDER
  6. PREMPRO [Suspect]
     Indication: OFF LABEL USE
     Dosage: UNK

REACTIONS (3)
  - BREAST CANCER METASTATIC [None]
  - MALAISE [None]
  - ABNORMAL BEHAVIOUR [None]
